FAERS Safety Report 8107450-0 (Version None)
Quarter: 2012Q1

REPORT INFORMATION
  Report Type: 
  Country: None (occurrence: None)
  Receive Date: 20120202
  Receipt Date: 20120131
  Transmission Date: 20120608
  Serious: No
  Sender: FDA-Public Use
  Company Number: US-BAYER-2012-010526

PATIENT
  Age: 58 Year
  Sex: Female

DRUGS (1)
  1. GADAVIST [Suspect]
     Indication: MULTIPLE SCLEROSIS
     Dosage: 10 ML, UNK
     Route: 042
     Dates: start: 20120126

REACTIONS (4)
  - EYE SWELLING [None]
  - DYSGEUSIA [None]
  - SWELLING FACE [None]
  - ERYTHEMA [None]
